FAERS Safety Report 4598529-9 (Version None)
Quarter: 2005Q1

REPORT INFORMATION
  Report Type: 
  Country: None (occurrence: None)
  Receive Date: 20050304
  Receipt Date: 20050211
  Transmission Date: 20050727
  Serious: Yes (Hospitalization)
  Sender: FDA-Public Use
  Company Number: FR-MERCK-0502FRA00040

PATIENT
  Age: 57 Year
  Sex: Male

DRUGS (6)
  1. ZETIA [Suspect]
     Indication: HYPERCHOLESTEROLAEMIA
     Route: 048
     Dates: start: 20050111, end: 20050209
  2. ASPIRIN LYSINE [Concomitant]
     Route: 048
     Dates: end: 20050211
  3. CLOPIDOGREL BISULFATE [Concomitant]
     Route: 048
  4. METOPROLOL TARTRATE [Concomitant]
     Route: 048
  5. PERINDOPRIL ERBUMINE [Concomitant]
     Route: 048
  6. FENOFIBRATE [Suspect]
     Indication: HYPERCHOLESTEROLAEMIA
     Route: 048
     Dates: start: 20041101, end: 20050205

REACTIONS (4)
  - CYTOLYTIC HEPATITIS [None]
  - HEPATITIS CHOLESTATIC [None]
  - PANCREATIC CARCINOMA [None]
  - RECTAL HAEMORRHAGE [None]
